FAERS Safety Report 24911373 (Version 3)
Quarter: 2025Q3

REPORT INFORMATION
  Report Type: Report from Study
  Country: EU (occurrence: EU)
  Receive Date: 20250131
  Receipt Date: 20250801
  Transmission Date: 20251020
  Serious: No
  Sender: MYLAN
  Company Number: EU-BAYER-2024A181746

PATIENT
  Age: 74 Year
  Sex: Male

DRUGS (16)
  1. SORAFENIB [Suspect]
     Active Substance: SORAFENIB
     Indication: Hepatocellular carcinoma
     Dosage: 400 MILLIGRAM, BID (400 MG DAILY)
     Dates: start: 20241203, end: 20241209
  2. SORAFENIB [Suspect]
     Active Substance: SORAFENIB
     Dosage: 400 MILLIGRAM, BID (400 MG DAILY)
     Route: 048
     Dates: start: 20241203, end: 20241209
  3. SORAFENIB [Suspect]
     Active Substance: SORAFENIB
     Dosage: 400 MILLIGRAM, BID (400 MG DAILY)
     Route: 048
     Dates: start: 20241203, end: 20241209
  4. SORAFENIB [Suspect]
     Active Substance: SORAFENIB
     Dosage: 400 MILLIGRAM, BID (400 MG DAILY)
     Dates: start: 20241203, end: 20241209
  5. REGORAFENIB [Suspect]
     Active Substance: REGORAFENIB
     Indication: Hepatocellular carcinoma
  6. REGORAFENIB [Suspect]
     Active Substance: REGORAFENIB
     Route: 065
  7. REGORAFENIB [Suspect]
     Active Substance: REGORAFENIB
     Route: 065
  8. REGORAFENIB [Suspect]
     Active Substance: REGORAFENIB
  9. BEVACIZUMAB [Concomitant]
     Active Substance: BEVACIZUMAB
     Dosage: 15 MILLIGRAM, Q3W
  10. BEVACIZUMAB [Concomitant]
     Active Substance: BEVACIZUMAB
     Dosage: 15 MILLIGRAM, Q3W
     Route: 065
  11. BEVACIZUMAB [Concomitant]
     Active Substance: BEVACIZUMAB
     Dosage: 15 MILLIGRAM, Q3W
     Route: 065
  12. BEVACIZUMAB [Concomitant]
     Active Substance: BEVACIZUMAB
     Dosage: 15 MILLIGRAM, Q3W
  13. CHLORAMPHENICOL [Concomitant]
     Active Substance: CHLORAMPHENICOL
  14. CHLORAMPHENICOL [Concomitant]
     Active Substance: CHLORAMPHENICOL
     Route: 065
  15. CHLORAMPHENICOL [Concomitant]
     Active Substance: CHLORAMPHENICOL
     Route: 065
  16. CHLORAMPHENICOL [Concomitant]
     Active Substance: CHLORAMPHENICOL

REACTIONS (1)
  - No adverse event [Recovered/Resolved]
